FAERS Safety Report 10169949 (Version 1)
Quarter: 2014Q2

REPORT INFORMATION
  Report Type: Spontaneous
  Country: CA (occurrence: CA)
  Receive Date: 20140513
  Receipt Date: 20140513
  Transmission Date: 20141212
  Serious: Yes (Other)
  Sender: FDA-Public Use
  Company Number: CHPA2014CA006346

PATIENT
  Age: 47 Year
  Sex: Male

DRUGS (5)
  1. BUCKLEY^S MIXTURE [Suspect]
     Indication: COUGH
     Dosage: UNK, PRN
     Route: 048
  2. BUCKLEY^S UNKNOWN [Suspect]
     Dosage: UNK UNK, PRN
     Route: 048
  3. BUCKLEY^S COLD + SINUS DAY LIQUID GELS [Suspect]
     Indication: SINUS DISORDER
     Route: 048
  4. BUCKLEY^S COMPLETE [Suspect]
     Indication: NASOPHARYNGITIS
     Dosage: UNK, PRN
     Route: 048
  5. BUCKLEY^S COMPLETE [Suspect]
     Indication: INFLUENZA

REACTIONS (3)
  - Type 2 diabetes mellitus [Not Recovered/Not Resolved]
  - H1N1 influenza [Recovered/Resolved]
  - Drug ineffective for unapproved indication [Unknown]
